FAERS Safety Report 21298007 (Version 1)
Quarter: 2022Q3

REPORT INFORMATION
  Report Type: Spontaneous
  Country: US (occurrence: None)
  Receive Date: 20220902
  Receipt Date: 20220902
  Transmission Date: 20221027
  Serious: Yes (Hospitalization)
  Sender: FDA-Public Use
  Company Number: None

PATIENT
  Age: 50 Year
  Sex: Female

DRUGS (24)
  1. AMBRISENTAN [Suspect]
     Active Substance: AMBRISENTAN
     Indication: Portopulmonary hypertension
     Dosage: FREQUENCY : DAILY;?
     Route: 048
     Dates: start: 20181214
  2. SILDENAFIL [Concomitant]
     Active Substance: SILDENAFIL
  3. REMODULIN [Concomitant]
     Active Substance: TREPROSTINIL
  4. NABUMETONE [Concomitant]
     Active Substance: NABUMETONE
  5. OXYGEN INTRANASAL [Concomitant]
  6. CYCLOSPORINE [Concomitant]
     Active Substance: CYCLOSPORINE
  7. AMLODIPINE [Concomitant]
     Active Substance: AMLODIPINE BESYLATE
  8. MYCOPHENOLIC ACID [Concomitant]
     Active Substance: MYCOPHENOLIC ACID
  9. MONTELUKAST [Concomitant]
     Active Substance: MONTELUKAST SODIUM
  10. SUMATRIPTAN [Concomitant]
     Active Substance: SUMATRIPTAN
  11. ESOMEPRAZOLE [Concomitant]
     Active Substance: ESOMEPRAZOLE
  12. METOCLOPRAMIDE [Concomitant]
     Active Substance: METOCLOPRAMIDE
  13. SELENIUM [Concomitant]
     Active Substance: SELENIUM
  14. DIGOXIN [Concomitant]
     Active Substance: DIGOXIN
  15. FLUOXETINE [Concomitant]
     Active Substance: FLUOXETINE HYDROCHLORIDE
  16. VITAMIN D3 [Concomitant]
     Active Substance: CHOLECALCIFEROL
  17. TERBINAFINE [Concomitant]
     Active Substance: TERBINAFINE
  18. TOPIRAMATE [Concomitant]
     Active Substance: TOPIRAMATE
  19. ONDANSETRON [Concomitant]
     Active Substance: ONDANSETRON
  20. METHYLPREDNISOLONE [Concomitant]
     Active Substance: METHYLPREDNISOLONE
  21. POTASSIUM CHLORIDE [Concomitant]
     Active Substance: POTASSIUM CHLORIDE
  22. NORCO [Suspect]
     Active Substance: ACETAMINOPHEN\HYDROCODONE BITARTRATE
  23. TRAMADOL [Concomitant]
     Active Substance: TRAMADOL
  24. PENTOXIFYLLINE [Concomitant]
     Active Substance: PENTOXIFYLLINE

REACTIONS (2)
  - Pneumonia [None]
  - Hypervolaemia [None]

NARRATIVE: CASE EVENT DATE: 20220615
